FAERS Safety Report 6158698-6 (Version None)
Quarter: 2009Q2

REPORT INFORMATION
  Report Type: 
  Country: None (occurrence: None)
  Receive Date: 20090417
  Receipt Date: 20090410
  Transmission Date: 20091009
  Serious: Yes (Hospitalization)
  Sender: FDA-Public Use
  Company Number: A0773808A

PATIENT
  Age: 48 Year
  Sex: Female
  Weight: 98.2 kg

DRUGS (3)
  1. HYCAMTIN [Suspect]
     Indication: METASTASES TO OVARY
     Dosage: 4MGM2 WEEKLY
     Route: 042
     Dates: start: 20090101
  2. BRONCHODILATOR [Concomitant]
  3. OXYGEN [Concomitant]

REACTIONS (2)
  - DISEASE PROGRESSION [None]
  - DYSPNOEA [None]
